FAERS Safety Report 7906760-7 (Version None)
Quarter: 2011Q4

REPORT INFORMATION
  Report Type: 
  Country: None (occurrence: None)
  Receive Date: 20111109
  Receipt Date: 20111109
  Transmission Date: 20120403
  Serious: Yes (Hospitalization, Other)
  Sender: FDA-Public Use
  Company Number: None

PATIENT
  Sex: Female
  Weight: 95.2554 kg

DRUGS (2)
  1. CEFPROZIL [Suspect]
     Indication: KIDNEY INFECTION
     Dosage: 1 TABLET TWICE A DAY ORAL
     Route: 048
     Dates: start: 20110909
  2. CEFPROZIL [Suspect]
     Indication: BACTERIAL INFECTION
     Dosage: 1 TABLET TWICE A DAY ORAL
     Route: 048
     Dates: start: 20110909

REACTIONS (4)
  - HYPOPHAGIA [None]
  - DIARRHOEA [None]
  - INSOMNIA [None]
  - WEIGHT DECREASED [None]
